FAERS Safety Report 7973802-2 (Version None)
Quarter: 2011Q4

REPORT INFORMATION
  Report Type: 
  Country: None (occurrence: None)
  Receive Date: 20111213
  Receipt Date: 20111202
  Transmission Date: 20120403
  Serious: Yes (Other)
  Sender: FDA-Public Use
  Company Number: GB-ROCHE-1020028

PATIENT
  Age: 5 Month
  Sex: Male
  Weight: 3.6 kg

DRUGS (1)
  1. XOLAIR [Suspect]
     Indication: PRODUCT USED FOR UNKNOWN INDICATION
     Route: 064
     Dates: start: 20090901, end: 20100920

REACTIONS (3)
  - JOINT DISLOCATION [None]
  - JAUNDICE NEONATAL [None]
  - SEPSIS [None]
